FAERS Safety Report 15343870 (Version 2)
Quarter: 2019Q4

REPORT INFORMATION
  Report Type: Spontaneous
  Country: US (occurrence: US)
  Receive Date: 20180903
  Receipt Date: 20191206
  Transmission Date: 20200122
  Serious: Yes (Hospitalization, Other)
  Sender: FDA-Public Use
  Company Number: US-GLAXOSMITHKLINE-US2018154208

PATIENT
  Age: 54 Year
  Sex: Female

DRUGS (7)
  1. CALCITROL [Concomitant]
     Indication: PRODUCT USED FOR UNKNOWN INDICATION
     Dosage: UNK
     Route: 065
  2. DUONEB [Concomitant]
     Active Substance: ALBUTEROL SULFATE\IPRATROPIUM BROMIDE
     Indication: PRODUCT USED FOR UNKNOWN INDICATION
     Dosage: UNK
     Route: 065
  3. SYNTHROID [Concomitant]
     Active Substance: LEVOTHYROXINE SODIUM
     Indication: PRODUCT USED FOR UNKNOWN INDICATION
     Dosage: UNK
     Route: 065
  4. SINGULAIR [Concomitant]
     Active Substance: MONTELUKAST SODIUM
     Indication: PRODUCT USED FOR UNKNOWN INDICATION
     Dosage: UNK
     Route: 065
  5. DULERA [Concomitant]
     Active Substance: FORMOTEROL FUMARATE DIHYDRATE\MOMETASONE FUROATE
     Indication: PRODUCT USED FOR UNKNOWN INDICATION
     Dosage: UNK
     Route: 065
  6. NUCALA [Suspect]
     Active Substance: MEPOLIZUMAB
     Indication: EOSINOPHILIC GRANULOMATOSIS WITH POLYANGIITIS
     Dosage: 100 MG, CYC
     Route: 058
     Dates: start: 2017
  7. LEVAQUIN [Concomitant]
     Active Substance: LEVOFLOXACIN
     Indication: PRODUCT USED FOR UNKNOWN INDICATION
     Dosage: UNK
     Route: 065

REACTIONS (25)
  - Hypocalcaemia [Recovered/Resolved]
  - Cardiac arrest [Unknown]
  - Malaise [Recovered/Resolved]
  - Thyroid cancer [Not Recovered/Not Resolved]
  - Seizure like phenomena [Unknown]
  - Oxygen saturation decreased [Unknown]
  - Aneurysm [Not Recovered/Not Resolved]
  - Thyroidectomy [Recovering/Resolving]
  - Muscle spasms [Not Recovered/Not Resolved]
  - Cerebrovascular accident [Unknown]
  - Wheezing [Unknown]
  - Back pain [Unknown]
  - Haematoma [Not Recovered/Not Resolved]
  - Dysphonia [Unknown]
  - Sinusitis [Recovering/Resolving]
  - Procedural complication [Not Recovered/Not Resolved]
  - Pneumonia [Recovered/Resolved]
  - Condition aggravated [Unknown]
  - Laryngeal injury [Not Recovered/Not Resolved]
  - Inhalation therapy [Not Recovered/Not Resolved]
  - Dyspnoea [Recovered/Resolved]
  - Incision site haematoma [Unknown]
  - Cough [Recovered/Resolved]
  - Surgery [Unknown]
  - Fatigue [Recovered/Resolved]

NARRATIVE: CASE EVENT DATE: 20180531
